FAERS Safety Report 8124275-0 (Version None)
Quarter: 2012Q1

REPORT INFORMATION
  Report Type: 
  Country: None (occurrence: None)
  Receive Date: 20120209
  Receipt Date: 20120203
  Transmission Date: 20120608
  Serious: Yes (Other)
  Sender: FDA-Public Use
  Company Number: CA-PFIZER INC-2012030423

PATIENT
  Age: 40 Year
  Sex: Female

DRUGS (8)
  1. DEXLANSOPRAZOLE [Concomitant]
     Dosage: UNK
  2. FOSAVANCE [Concomitant]
     Dosage: UNK
  3. SOLU-MEDROL [Concomitant]
     Dosage: UNK
  4. PLAQUENIL [Concomitant]
     Dosage: UNK
  5. CESAMET [Concomitant]
     Dosage: UNK
  6. PRISTIQ [Suspect]
     Dosage: 50 MG, FREQUENCY UNSPECIFIED
     Dates: start: 20111101, end: 20120127
  7. VITAMIN TAB [Concomitant]
     Dosage: UNK
  8. FOLIC ACID [Concomitant]
     Dosage: UNK

REACTIONS (4)
  - NAUSEA [None]
  - VISUAL IMPAIRMENT [None]
  - VISION BLURRED [None]
  - WEIGHT DECREASED [None]
